FAERS Safety Report 17596871 (Version 5)
Quarter: 2022Q1

REPORT INFORMATION
  Report Type: Spontaneous
  Country: DE (occurrence: DE)
  Receive Date: 20200330
  Receipt Date: 20220217
  Transmission Date: 20220424
  Serious: Yes (Hospitalization, Other)
  Sender: FDA-Public Use
  Company Number: DE-MYLANLABS-2020M1014378

PATIENT
  Sex: Male
  Weight: 98 kg

DRUGS (64)
  1. VALSARTAN [Suspect]
     Active Substance: VALSARTAN
     Indication: Blood pressure abnormal
     Dosage: 160 MILLIGRAM
     Route: 065
     Dates: start: 20180411
  2. VALSARTAN [Suspect]
     Active Substance: VALSARTAN
     Indication: Hypertension
     Dosage: UNK
     Route: 065
     Dates: start: 20180718, end: 20190424
  3. VALSARTAN [Suspect]
     Active Substance: VALSARTAN
     Indication: Blood pressure abnormal
     Dosage: UNK
     Route: 065
     Dates: start: 20180718, end: 20190424
  4. VALSARTAN [Suspect]
     Active Substance: VALSARTAN
     Indication: Blood pressure abnormal
     Dosage: UNK
     Route: 065
  5. VALSARTAN [Suspect]
     Active Substance: VALSARTAN
     Indication: Product used for unknown indication
     Dosage: 160 MILLIGRAM, ONCE A DAY
     Route: 065
     Dates: start: 20180719, end: 20181119
  6. VALSARTAN [Suspect]
     Active Substance: VALSARTAN
     Dosage: 160 MILLIGRAM, ONCE A DAY
     Route: 065
     Dates: start: 20181005
  7. AMITRIPTYLINE HYDROCHLORIDE [Concomitant]
     Active Substance: AMITRIPTYLINE HYDROCHLORIDE
     Indication: Pain
     Dosage: UNK
     Route: 048
  8. FOSTER [Concomitant]
     Active Substance: BECLOMETHASONE\FORMOTEROL
     Indication: Chronic obstructive pulmonary disease
     Dosage: UNK
     Route: 055
  9. FOSTER [Concomitant]
     Active Substance: BECLOMETHASONE\FORMOTEROL
     Dosage: UNK (10)
     Route: 065
  10. ETORICOXIB [Concomitant]
     Active Substance: ETORICOXIB
     Indication: Pain
     Dosage: UNK
     Route: 048
  11. VENLAFAXINE [Concomitant]
     Active Substance: VENLAFAXINE HYDROCHLORIDE
     Indication: Pain
     Dosage: UNK
     Route: 048
  12. METFORMIN [Concomitant]
     Active Substance: METFORMIN HYDROCHLORIDE
     Indication: Diabetes mellitus
     Dosage: UNK
     Route: 048
  13. SPIRIVA [Concomitant]
     Active Substance: TIOTROPIUM BROMIDE MONOHYDRATE
     Indication: Chronic obstructive pulmonary disease
     Dosage: UNK
     Route: 055
  14. HYDROMORPHONE [Concomitant]
     Active Substance: HYDROMORPHONE
     Indication: Pain
     Dosage: UNK
     Route: 048
  15. TAMSULOSIN HYDROCHLORIDE [Concomitant]
     Active Substance: TAMSULOSIN HYDROCHLORIDE
     Indication: Product used for unknown indication
     Dosage: UNK
     Route: 065
  16. CANDESARTAN CILEXETIL [Concomitant]
     Active Substance: CANDESARTAN CILEXETIL
     Indication: Product used for unknown indication
     Dosage: UNK
     Route: 065
  17. TRAMAGIT [Concomitant]
     Indication: Product used for unknown indication
     Dosage: UNK
     Route: 065
  18. ETORICOXIB AL [Concomitant]
     Indication: Product used for unknown indication
     Dosage: UNK
     Route: 065
  19. ACETAMINOPHEN\TRAMADOL HYDROCHLORIDE [Concomitant]
     Active Substance: ACETAMINOPHEN\TRAMADOL HYDROCHLORIDE
     Indication: Product used for unknown indication
     Dosage: UNK (37,5 / 325)
     Route: 065
  20. MELATONIN [Concomitant]
     Active Substance: MELATONIN
     Indication: Product used for unknown indication
     Dosage: UNK
     Route: 065
  21. CANDESARTAN CILEXETIL [Concomitant]
     Active Substance: CANDESARTAN CILEXETIL
     Indication: Product used for unknown indication
     Dosage: UNK
     Route: 065
  22. GABAPENTIN [Concomitant]
     Active Substance: GABAPENTIN
     Indication: Product used for unknown indication
     Dosage: UNK
     Route: 065
  23. RAMIPRIL [Concomitant]
     Active Substance: RAMIPRIL
     Indication: Product used for unknown indication
     Dosage: UNK
     Route: 065
  24. CELECOXIB ABZ [Concomitant]
     Indication: Product used for unknown indication
     Dosage: UNK
     Route: 065
  25. SALBUHEXAL [Concomitant]
     Active Substance: ALBUTEROL
     Indication: Product used for unknown indication
     Dosage: UNK (200 HUB)
     Route: 065
  26. FLUOXETINE [Concomitant]
     Active Substance: FLUOXETINE HYDROCHLORIDE
     Indication: Product used for unknown indication
     Dosage: UNK
     Route: 065
  27. Capval [Concomitant]
     Indication: Product used for unknown indication
     Dosage: UNK
     Route: 065
  28. METFORMIN HYDROCHLORIDE [Concomitant]
     Active Substance: METFORMIN HYDROCHLORIDE
     Indication: Product used for unknown indication
     Dosage: UNK
     Route: 065
  29. VALSARTAN [Concomitant]
     Active Substance: VALSARTAN
     Indication: Product used for unknown indication
     Dosage: UNK
     Route: 065
  30. VERMOX [Concomitant]
     Active Substance: MEBENDAZOLE
     Indication: Product used for unknown indication
     Dosage: UNK
  31. TIOTROPIUM BROMIDE ANHYDROUS [Concomitant]
     Active Substance: TIOTROPIUM BROMIDE ANHYDROUS
     Indication: Product used for unknown indication
     Dosage: UNK (KAP NACHFULL) (CAPE REFILL
     Route: 065
  32. TIOTROPIUM BROMIDE [Concomitant]
     Active Substance: TIOTROPIUM BROMIDE
     Indication: Product used for unknown indication
     Dosage: 10 MICROGRAM (PLUS 3 ZONDA)
     Route: 065
  33. TRIMIPRAMINE MALEATE [Concomitant]
     Active Substance: TRIMIPRAMINE MALEATE
     Indication: Product used for unknown indication
     Dosage: UNK
     Route: 065
  34. VENLAFAXINE HYDROCHLORIDE [Concomitant]
     Active Substance: VENLAFAXINE HYDROCHLORIDE
     Indication: Product used for unknown indication
     Dosage: UNK
     Route: 065
  35. ETORI 1 A PHARMA [Concomitant]
     Indication: Product used for unknown indication
     Dosage: UNK
     Route: 065
  36. Amlodipin hexal [Concomitant]
     Indication: Product used for unknown indication
     Dosage: UNK
     Route: 065
  37. EXFORGE [Concomitant]
     Active Substance: AMLODIPINE BESYLATE\VALSARTAN
     Indication: Product used for unknown indication
     Dosage: UNK
     Route: 065
  38. BETAMETHASONE DIPROPIONATE\GENTAMICIN SULFATE [Concomitant]
     Active Substance: BETAMETHASONE DIPROPIONATE\GENTAMICIN SULFATE
     Indication: Product used for unknown indication
     Dosage: UNK
     Route: 065
  39. IBUPROFEN [Concomitant]
     Active Substance: IBUPROFEN
     Indication: Product used for unknown indication
     Dosage: UNK
     Route: 065
  40. HYDROMORPHONHYDROCHLORID BETA [Concomitant]
     Indication: Product used for unknown indication
     Dosage: UNK (2)
     Route: 065
  41. TRAMADOL 1 A PHARMA [Concomitant]
     Indication: Product used for unknown indication
     Dosage: UNK, (150 RET)
     Route: 065
  42. TRAMADOL 1 A PHARMA [Concomitant]
     Dosage: UNK, (200 RET)
     Route: 065
  43. FOSTER [Concomitant]
     Active Substance: BECLOMETHASONE\FORMOTEROL
     Indication: Product used for unknown indication
     Dosage: UNK
     Route: 065
  44. GABAPENTIN [Concomitant]
     Active Substance: GABAPENTIN
     Indication: Product used for unknown indication
     Dosage: UNK (MICRO LAB)
     Route: 065
  45. Hydrocutan [Concomitant]
     Indication: Product used for unknown indication
     Dosage: UNK
     Route: 065
  46. PANTOPRAZOLE SODIUM [Concomitant]
     Active Substance: PANTOPRAZOLE SODIUM
     Indication: Product used for unknown indication
     Dosage: UNK
     Route: 065
  47. TRAMADOL AXCOUNT [Concomitant]
     Indication: Product used for unknown indication
     Dosage: UNK
     Route: 065
  48. VENLAFAXINE [Concomitant]
     Active Substance: VENLAFAXINE HYDROCHLORIDE
     Indication: Pain
     Dosage: UNK
     Route: 048
  49. PANTOPRAZOLE SODIUM [Concomitant]
     Active Substance: PANTOPRAZOLE SODIUM
     Indication: Product used for unknown indication
     Dosage: UNK
     Route: 065
  50. AMITRIPTYLINE [Concomitant]
     Active Substance: AMITRIPTYLINE
     Indication: Product used for unknown indication
     Dosage: UNK (AMITRPTYLIN DURA)
     Route: 065
  51. METAMIZOLE SODIUM [Concomitant]
     Active Substance: METAMIZOLE SODIUM
     Indication: Product used for unknown indication
     Dosage: UNK
     Route: 065
  52. CYMBALTA [Concomitant]
     Active Substance: DULOXETINE HYDROCHLORIDE
     Indication: Product used for unknown indication
     Dosage: UNK
     Route: 065
  53. CELECOXIB 1A PHARMA [Concomitant]
     Indication: Product used for unknown indication
     Dosage: UNK
     Route: 065
  54. DICLOFENAC AL [Concomitant]
     Indication: Product used for unknown indication
     Dosage: UNK (100)
     Route: 065
  55. MIRTAZAPINE [Concomitant]
     Active Substance: MIRTAZAPINE
     Indication: Product used for unknown indication
     Dosage: UNK
     Route: 065
  56. VENLAFAXIN ATID [Concomitant]
     Indication: Product used for unknown indication
     Dosage: UNK
     Route: 065
  57. DEXAMETHASONE [Concomitant]
     Active Substance: DEXAMETHASONE
     Indication: Product used for unknown indication
     Dosage: UNK
     Route: 065
  58. CANNABIS SATIVA SUBSP. INDICA TOP [Concomitant]
     Active Substance: CANNABIS SATIVA SUBSP. INDICA TOP
     Indication: Product used for unknown indication
     Dosage: UNK (FLOWERS)
     Route: 065
  59. CELECOXIB [Concomitant]
     Active Substance: CELECOXIB
     Indication: Product used for unknown indication
     Dosage: UNK
     Route: 065
  60. GABAPENTIN [Concomitant]
     Active Substance: GABAPENTIN
     Indication: Product used for unknown indication
     Dosage: UNK
     Route: 065
  61. ETORICOXIB [Concomitant]
     Active Substance: ETORICOXIB
     Indication: Product used for unknown indication
     Dosage: UNK
     Route: 065
  62. CELEBREX [Concomitant]
     Active Substance: CELECOXIB
     Indication: Product used for unknown indication
     Dosage: UNK
     Route: 065
  63. ETORICOXIB PUREN [Concomitant]
     Indication: Product used for unknown indication
     Dosage: UNK
     Route: 065
  64. ETORICOXIB GLENMARK [Concomitant]
     Indication: Product used for unknown indication
     Dosage: UNK
     Route: 065

REACTIONS (6)
  - Depression [Unknown]
  - Mental impairment [Unknown]
  - Anxiety disorder [Unknown]
  - Impaired quality of life [Unknown]
  - Fear of disease [Unknown]
  - Recalled product [Unknown]
